FAERS Safety Report 10263032 (Version 2)
Quarter: 2014Q2

REPORT INFORMATION
  Report Type: Report from Study
  Country: US (occurrence: US)
  Receive Date: 20140626
  Receipt Date: 20140626
  Transmission Date: 20141212
  Serious: Yes (Death)
  Sender: FDA-Public Use
  Company Number: US-MYLANLABS-2013S1027559

PATIENT
  Age: 64 Year
  Sex: Male

DRUGS (12)
  1. CLOZAPINE TABLETS [Suspect]
     Indication: SCHIZOPHRENIA, PARANOID TYPE
     Route: 048
     Dates: end: 201311
  2. TYLENOL [Concomitant]
  3. ASPIRIN [Concomitant]
  4. VITAMIN D [Concomitant]
  5. HCTZ [Concomitant]
  6. SYNTHROID [Concomitant]
     Indication: HYPOTHYROIDISM
  7. NITROGLYCERIN [Concomitant]
  8. PRILOSEC [Concomitant]
  9. OMEGA 3 FATTY ACID [Concomitant]
  10. K-DUR [Concomitant]
  11. RISPERDAL [Concomitant]
  12. SIMVASTATIN [Concomitant]

REACTIONS (1)
  - Accidental death [Fatal]
